FAERS Safety Report 12466903 (Version 2)
Quarter: 2016Q2

REPORT INFORMATION
  Report Type: Report from Study
  Country: DE (occurrence: DE)
  Receive Date: 20160615
  Receipt Date: 20160623
  Transmission Date: 20160815
  Serious: Yes (Death, Other)
  Sender: FDA-Public Use
  Company Number: PHHY2016DE054611

PATIENT
  Sex: Female
  Weight: 49 kg

DRUGS (2)
  1. EXEMESTANE. [Concomitant]
     Active Substance: EXEMESTANE
     Indication: BREAST CANCER METASTATIC
     Dosage: 25 MG, QD
     Route: 048
     Dates: start: 20151009, end: 20160120
  2. AFINITOR [Suspect]
     Active Substance: EVEROLIMUS
     Indication: BREAST CANCER METASTATIC
     Dosage: 10 MG, QD
     Route: 048
     Dates: start: 20151009, end: 20160120

REACTIONS (16)
  - Dyspnoea [Not Recovered/Not Resolved]
  - Calcinosis [Unknown]
  - Oedema peripheral [Recovering/Resolving]
  - Soft tissue swelling [Unknown]
  - Haemoglobin decreased [Unknown]
  - Tachypnoea [Unknown]
  - Arrhythmia [Unknown]
  - Fatigue [Unknown]
  - Malignant neoplasm progression [Fatal]
  - Metastases to pleura [Fatal]
  - General physical health deterioration [Fatal]
  - Malaise [Unknown]
  - Lymphangitis [Fatal]
  - Malignant pleural effusion [Unknown]
  - Hypertension [Unknown]
  - Pneumonitis [Recovering/Resolving]

NARRATIVE: CASE EVENT DATE: 201601
